FAERS Safety Report 5168328-8 (Version None)
Quarter: 2006Q4

REPORT INFORMATION
  Report Type: 
  Country: None (occurrence: None)
  Receive Date: 20061208
  Receipt Date: 20061129
  Transmission Date: 20070319
  Serious: Yes (Hospitalization)
  Sender: FDA-Public Use
  Company Number: US-JNJFOC-20061200298

PATIENT
  Sex: Female
  Weight: 54.89 kg

DRUGS (18)
  1. DURAGESIC-100 [Suspect]
     Indication: PAIN
     Route: 062
  2. FLOVENT [Concomitant]
     Indication: ASTHMA
     Route: 055
  3. PROVENTIL [Concomitant]
     Indication: ASTHMA
     Route: 055
  4. SINGULAIR [Concomitant]
     Indication: MULTIPLE ALLERGIES
     Route: 048
  5. ZYRTEC-D [Concomitant]
     Indication: MULTIPLE ALLERGIES
     Route: 048
  6. NEXIUM [Concomitant]
     Indication: GASTROINTESTINAL DISORDER
     Route: 048
  7. CARAFATE [Concomitant]
     Indication: ULCER
     Dosage: TAKEN 30 MINUTES BEFORE MEALS
     Route: 048
  8. PHENERGAN [Concomitant]
     Indication: NAUSEA
     Dosage: EVERY 4-6HOURS
     Route: 048
  9. ZOFRAN [Concomitant]
     Indication: NAUSEA
  10. VERAPAMIL [Concomitant]
     Indication: MIGRAINE
     Route: 048
  11. ERGOMAR [Concomitant]
     Indication: MIGRAINE
  12. BENTYL [Concomitant]
     Indication: IRRITABLE BOWEL SYNDROME
     Dosage: 1 EVERY 6 HOURS AS NEEDED
     Route: 048
  13. DIFLUCAN [Concomitant]
     Indication: NAUSEA
     Route: 048
  14. LORTAB [Concomitant]
     Indication: BREAKTHROUGH PAIN
     Route: 048
  15. PYRIDIUM [Concomitant]
     Indication: NEPHROLITHIASIS
     Route: 048
  16. ELMIRON [Concomitant]
     Indication: NEPHROLITHIASIS
     Route: 048
  17. DILAUDID [Concomitant]
     Indication: BREAKTHROUGH PAIN
     Route: 065
  18. EPZICOM [Concomitant]
     Indication: HIV INFECTION
     Route: 048

REACTIONS (4)
  - ARTHRITIS [None]
  - INAPPROPRIATE SCHEDULE OF DRUG ADMINISTRATION [None]
  - NAUSEA [None]
  - VOMITING [None]
